FAERS Safety Report 4940210-8 (Version None)
Quarter: 2006Q1

REPORT INFORMATION
  Report Type: 
  Country: None (occurrence: None)
  Receive Date: 20060310
  Receipt Date: 20050705
  Transmission Date: 20060701
  Serious: Yes (Death, Hospitalization, Disabling, Other)
  Sender: FDA-Public Use
  Company Number: US-MERCK-0507USA00675

PATIENT
  Age: 46 Year
  Sex: Male
  Weight: 145 kg

DRUGS (1)
  1. VIOXX [Suspect]
     Route: 048
     Dates: end: 20030626

REACTIONS (30)
  - ABDOMINAL PAIN [None]
  - ARTERIOSCLEROSIS [None]
  - ARTHRALGIA [None]
  - BACK PAIN [None]
  - BLOOD CHOLESTEROL INCREASED [None]
  - CARDIAC FAILURE [None]
  - CARDIOMEGALY [None]
  - CELLULITIS [None]
  - CONSTIPATION [None]
  - DIABETES MELLITUS NON-INSULIN-DEPENDENT [None]
  - DYSPNOEA [None]
  - FALL [None]
  - FATIGUE [None]
  - HAEMATOCHEZIA [None]
  - HYPERTENSION [None]
  - HYPERTENSIVE HEART DISEASE [None]
  - INSOMNIA [None]
  - JOINT DISLOCATION [None]
  - JOINT SWELLING [None]
  - LIGAMENT INJURY [None]
  - MYOCARDIAL INFARCTION [None]
  - NASOPHARYNGITIS [None]
  - NECK PAIN [None]
  - NEPHROSCLEROSIS [None]
  - OBESITY [None]
  - RADIUS FRACTURE [None]
  - SKIN INFECTION [None]
  - SLEEP APNOEA SYNDROME [None]
  - TINNITUS [None]
  - URINARY RETENTION [None]
